FAERS Safety Report 22164229 (Version 1)
Quarter: 2023Q2

REPORT INFORMATION
  Report Type: Other
  Country: US (occurrence: None)
  Receive Date: 20230403
  Receipt Date: 20230403
  Transmission Date: 20230722
  Serious: Yes (Other)
  Sender: FDA-Public Use
  Company Number: US-ROCHE-3306330

PATIENT
  Age: 71 Year
  Sex: Female

DRUGS (1)
  1. OCREVUS [Suspect]
     Active Substance: OCRELIZUMAB
     Indication: Relapsing multiple sclerosis
     Dosage: 300MG ON DAY 1 AND DAY 15 AND 600 MG EVERY 6 MONTHS
     Route: 042
     Dates: start: 20171114

REACTIONS (1)
  - Multiple sclerosis [Not Recovered/Not Resolved]
